FAERS Safety Report 15926838 (Version 2)
Quarter: 2019Q1

REPORT INFORMATION
  Report Type: Spontaneous
  Country: US (occurrence: US)
  Receive Date: 20190205
  Receipt Date: 20190219
  Transmission Date: 20190417
  Serious: No
  Sender: FDA-Public Use
  Company Number: US-ALLERGAN-1853332US

PATIENT
  Age: 50 Year
  Sex: Female
  Weight: 71.2 kg

DRUGS (1)
  1. BOTOX [Suspect]
     Active Substance: ONABOTULINUMTOXINA
     Indication: PRODUCT USED FOR UNKNOWN INDICATION
     Dosage: 155 UNITS, SINGLE
     Route: 030
     Dates: start: 20180816, end: 20180816

REACTIONS (1)
  - Brow ptosis [Unknown]

NARRATIVE: CASE EVENT DATE: 2018
